FAERS Safety Report 12014009 (Version 2)
Quarter: 2016Q1

REPORT INFORMATION
  Report Type: Spontaneous
  Country: NL (occurrence: NL)
  Receive Date: 20160205
  Receipt Date: 20160216
  Transmission Date: 20160526
  Serious: Yes (Life-Threatening, Hospitalization)
  Sender: FDA-Public Use
  Company Number: PHHY2016NL012493

PATIENT
  Age: 25 Year
  Sex: Female
  Weight: 65 kg

DRUGS (3)
  1. SALBUTAMOL SANDOZ [Suspect]
     Active Substance: ALBUTEROL
     Indication: ASTHMA
     Dosage: 4 KEER PER DAG 2 STUK(S), EXTRA INFO: 2X2 INHALATIES + 4X2 INDIEN NODIG
     Route: 055
     Dates: start: 2015, end: 20151215
  2. FOSTER [Concomitant]
     Active Substance: BECLOMETHASONE\FORMOTEROL
     Indication: PRODUCT USED FOR UNKNOWN INDICATION
     Dosage: 2 KEER PER DAG 2 STUK(S)
     Route: 055
     Dates: start: 20140101
  3. ATROVENT [Concomitant]
     Active Substance: IPRATROPIUM BROMIDE
     Indication: PRODUCT USED FOR UNKNOWN INDICATION
     Dosage: 2 KEER PER DAG 2 STUK(S), EXTRA INFO: INDIEN NODIG (MAX 6)
     Route: 055
     Dates: start: 2015

REACTIONS (3)
  - Asthma [Recovering/Resolving]
  - Therapeutic response decreased [Recovering/Resolving]
  - Product quality issue [Recovering/Resolving]

NARRATIVE: CASE EVENT DATE: 20151001
